FAERS Safety Report 9398454 (Version 1)
Quarter: 2013Q3

REPORT INFORMATION
  Report Type: Spontaneous
  Country: MX (occurrence: MX)
  Receive Date: 20130712
  Receipt Date: 20130712
  Transmission Date: 20140515
  Serious: No
  Sender: FDA-Public Use
  Company Number: MX-009507513-1307MEX006100

PATIENT
  Sex: Female

DRUGS (1)
  1. IMPLANON [Suspect]
     Indication: CONTRACEPTION
     Dosage: 60-70 MCG/DAY WEEK 5-6, 35-45 MCG/DAY END OF 1ST YEAR, 30-40 MCG/DAY END OF 2ND YEAR, 25-30MCG/DAY E
     Route: 059
     Dates: start: 201201

REACTIONS (1)
  - Ovarian cyst [Unknown]
